FAERS Safety Report 20065655 (Version 1)
Quarter: 2021Q4

REPORT INFORMATION
  Report Type: Spontaneous
  Country: US (occurrence: US)
  Receive Date: 20211113
  Receipt Date: 20211113
  Transmission Date: 20220303
  Serious: Yes (Other)
  Sender: FDA-Public Use
  Company Number: US-UNITED THERAPEUTICS-UNT-2021-022526

PATIENT
  Age: 60 Year
  Sex: Female

DRUGS (7)
  1. REMODULIN [Suspect]
     Active Substance: TREPROSTINIL
     Indication: Pulmonary hypertension
     Dosage: UNK, CONTINUING
     Route: 058
  2. AMBRISENTAN [Concomitant]
     Active Substance: AMBRISENTAN
     Indication: Pulmonary hypertension
     Dosage: UNK
     Route: 065
  3. TADALAFIL [Concomitant]
     Active Substance: TADALAFIL
     Indication: Pulmonary hypertension
     Dosage: UNK
     Route: 065
  4. MILRINONE LACTATE [Concomitant]
     Active Substance: MILRINONE LACTATE
     Indication: Pulmonary arterial pressure
     Dosage: UNK
     Route: 065
  5. MILRINONE LACTATE [Concomitant]
     Active Substance: MILRINONE LACTATE
     Indication: Right ventricular systolic pressure
  6. NITRIC OXIDE [Concomitant]
     Active Substance: NITRIC OXIDE
     Indication: Pulmonary arterial pressure
     Dosage: UNK
  7. NITRIC OXIDE [Concomitant]
     Active Substance: NITRIC OXIDE
     Indication: Right ventricular systolic pressure

REACTIONS (7)
  - Pulmonary hypertension [Recovering/Resolving]
  - Oedema peripheral [Recovered/Resolved]
  - Sleep apnoea syndrome [Recovering/Resolving]
  - Right ventricular enlargement [Unknown]
  - Left ventricular dysfunction [Unknown]
  - Therapy non-responder [Unknown]
  - Off label use [Unknown]
